FAERS Safety Report 7131594-3 (Version None)
Quarter: 2010Q4

REPORT INFORMATION
  Report Type: 
  Country: None (occurrence: None)
  Receive Date: 20101201
  Receipt Date: 20101122
  Transmission Date: 20110411
  Serious: Yes (Other)
  Sender: FDA-Public Use
  Company Number: US-ABBOTT-10P-163-0686848-00

PATIENT
  Sex: Male
  Weight: 106.69 kg

DRUGS (10)
  1. NIASPAN [Suspect]
     Indication: BLOOD CHOLESTEROL INCREASED
     Dosage: 500MG DAILY
     Dates: start: 20081101, end: 20090101
  2. NIASPAN [Suspect]
     Indication: BLOOD TRIGLYCERIDES INCREASED
  3. NIASPAN [Suspect]
     Indication: BLOOD CHOLESTEROL INCREASED
     Dates: start: 20090101, end: 20100101
  4. NIASPAN [Suspect]
     Indication: BLOOD TRIGLYCERIDES INCREASED
     Dates: start: 20100101, end: 20100901
  5. NIASPAN [Suspect]
     Dates: start: 20100901
  6. PLAVIX [Concomitant]
     Indication: BLOOD CHOLESTEROL INCREASED
  7. PLAVIX [Concomitant]
     Indication: BLOOD TRIGLYCERIDES INCREASED
  8. CRESTOR [Concomitant]
     Indication: BLOOD CHOLESTEROL INCREASED
  9. CRESTOR [Concomitant]
     Indication: BLOOD TRIGLYCERIDES INCREASED
  10. AVODART [Concomitant]
     Indication: PROSTATE CANCER

REACTIONS (3)
  - CHEST PAIN [None]
  - FLUSHING [None]
  - INCORRECT DOSE ADMINISTERED [None]
